FAERS Safety Report 25755802 (Version 1)
Quarter: 2025Q3

REPORT INFORMATION
  Report Type: Spontaneous
  Country: US (occurrence: None)
  Receive Date: 20250902
  Receipt Date: 20250902
  Transmission Date: 20251020
  Serious: Yes (Hospitalization)
  Sender: FDA-CTU
  Company Number: None

PATIENT
  Sex: Female

DRUGS (11)
  1. LENALIDOMIDE [Suspect]
     Active Substance: LENALIDOMIDE
     Indication: Plasma cell myeloma
     Route: 048
     Dates: start: 20230831
  2. ACETAMINOPHE TAB 325MG [Concomitant]
  3. ALBUTEROL  AER HFA [Concomitant]
  4. DOXYCYCL HYC TAB 100MG [Concomitant]
  5. FEXOFENADINE HYDROCHLORIDE [Concomitant]
     Active Substance: FEXOFENADINE HYDROCHLORIDE
  6. LOPERAMIDE CAP [Concomitant]
  7. LORATADINE TAB 10MG [Concomitant]
  8. OMEPRAZOLE TAB 20MG [Concomitant]
  9. PREDNISONE [Concomitant]
     Active Substance: PREDNISONE
  10. PROBIOTIC  CAP [Concomitant]
  11. VITAMIN B12 TAB 5000MCG [Concomitant]

REACTIONS (2)
  - Fall [None]
  - Lower limb fracture [None]
